FAERS Safety Report 5588933-4 (Version None)
Quarter: 2007Q4

REPORT INFORMATION
  Report Type: 
  Country: None (occurrence: None)
  Receive Date: 20071212
  Receipt Date: 20070921
  Transmission Date: 20080405
  Serious: No
  Sender: FDA-Public Use
  Company Number: 2007RL000421

PATIENT
  Sex: Female

DRUGS (1)
  1. LOVAZA [Suspect]

REACTIONS (3)
  - ANXIETY [None]
  - DIZZINESS [None]
  - STOMACH DISCOMFORT [None]
